FAERS Safety Report 5619414-7 (Version None)
Quarter: 2008Q1

REPORT INFORMATION
  Report Type: 
  Country: None (occurrence: None)
  Receive Date: 20080114
  Receipt Date: 20061120
  Transmission Date: 20080703
  Serious: Yes (Other)
  Sender: FDA-Public Use
  Company Number: FEI2006-1448

PATIENT
  Age: 26 Year
  Sex: Female
  Weight: 56.246 kg

DRUGS (4)
  1. PARAGARD T 380A [Suspect]
     Indication: CONTRACEPTION
     Dosage: INTRA-UTERINE
     Route: 016
     Dates: start: 20050523, end: 20061010
  2. VICODIN [Concomitant]
  3. HYDROCODONE (HYDROCODONE) [Concomitant]
  4. NEXIUM [Concomitant]

REACTIONS (4)
  - ABDOMINAL PAIN [None]
  - ABORTION [None]
  - BLIGHTED OVUM [None]
  - UNINTENDED PREGNANCY [None]
